FAERS Safety Report 6945420-6 (Version None)
Quarter: 2010Q3

REPORT INFORMATION
  Report Type: 
  Country: None (occurrence: None)
  Receive Date: 20100827
  Receipt Date: 20100819
  Transmission Date: 20110219
  Serious: Yes (Other)
  Sender: FDA-Public Use
  Company Number: FR-ROCHE-713130

PATIENT
  Sex: Female

DRUGS (10)
  1. ROACTEMRA [Suspect]
     Dosage: FORM: INFUSION
     Route: 042
     Dates: start: 20091208, end: 20091208
  2. CORTANCYL [Suspect]
     Route: 048
  3. ACUPAN [Concomitant]
     Dates: start: 20060101
  4. TOPALGIC [Concomitant]
     Dates: start: 20060101
  5. METHOTREXATE [Concomitant]
     Route: 048
     Dates: start: 20060101
  6. METHOTREXATE [Concomitant]
     Dosage: 20 MG PER WEEK
     Route: 048
     Dates: start: 20060101
  7. SPECIAFOLDINE [Concomitant]
  8. LEVONORGESTREL AND ETHINYL ESTRADIOL [Concomitant]
     Dates: start: 20060101
  9. IMPLANON [Concomitant]
     Dates: start: 20060101
  10. ASPEGIC 1000 [Concomitant]
     Dosage: AT ANTI-AGGREGANT DOSE
     Dates: start: 20060101

REACTIONS (1)
  - CYTOLYTIC HEPATITIS [None]
